FAERS Safety Report 25958057 (Version 1)
Quarter: 2025Q4

REPORT INFORMATION
  Report Type: Spontaneous
  Country: RU (occurrence: RU)
  Receive Date: 20251024
  Receipt Date: 20251024
  Transmission Date: 20260118
  Serious: Yes (Death)
  Sender: EISAI
  Company Number: RU-Eisai-EC-2025-198910

PATIENT
  Age: 67 Year
  Sex: Male
  Weight: 90 kg

DRUGS (1)
  1. LENVATINIB [Suspect]
     Active Substance: LENVATINIB
     Indication: Renal cancer metastatic
     Route: 048
     Dates: start: 20220915, end: 20250428

REACTIONS (1)
  - Mesenteric vein thrombosis [Fatal]

NARRATIVE: CASE EVENT DATE: 20250428
